FAERS Safety Report 14262266 (Version 1)
Quarter: 2017Q4

REPORT INFORMATION
  Report Type: Report from Study
  Country: US (occurrence: US)
  Receive Date: 20171208
  Receipt Date: 20171208
  Transmission Date: 20180321
  Serious: No
  Sender: FDA-Public Use
  Company Number: US-KYOWAKIRIN-2017BKK000612

PATIENT

DRUGS (1)
  1. GRANISETRON [Suspect]
     Active Substance: GRANISETRON
     Indication: GASTROINTESTINAL DISORDER
     Dosage: 1 DF, 1X/WEEK (PRESCRIBED ONLY ONE PATCH)
     Route: 062

REACTIONS (2)
  - Drug prescribing error [Unknown]
  - Product use in unapproved indication [Unknown]
